FAERS Safety Report 9562230 (Version 1)
Quarter: 2013Q3

REPORT INFORMATION
  Report Type: Report from Study
  Country: GT (occurrence: GT)
  Receive Date: 20130927
  Receipt Date: 20130927
  Transmission Date: 20140515
  Serious: Yes (Hospitalization)
  Sender: FDA-Public Use
  Company Number: PHHY2013GT107606

PATIENT
  Age: 56 Year
  Sex: Female

DRUGS (2)
  1. GLIVEC [Suspect]
     Indication: CHRONIC MYELOID LEUKAEMIA
     Dosage: 400 MG, UNK
  2. GLIVEC [Suspect]
     Dosage: 600 MG, UNK

REACTIONS (2)
  - Hepatic steatosis [Unknown]
  - Malaise [Unknown]
